FAERS Safety Report 4675800-3 (Version None)
Quarter: 2005Q2

REPORT INFORMATION
  Report Type: 
  Country: None (occurrence: None)
  Receive Date: 20050527
  Receipt Date: 20050429
  Transmission Date: 20051028
  Serious: Yes (Other)
  Sender: FDA-Public Use
  Company Number: AU-NOVOPROD-243930

PATIENT
  Age: 0 Day

DRUGS (2)
  1. ACTRAPID [Suspect]
     Indication: ILL-DEFINED DISORDER
     Route: 063
  2. PROTAPHANE PENFILL [Suspect]
     Indication: ILL-DEFINED DISORDER
     Route: 063

REACTIONS (4)
  - CAESAREAN SECTION [None]
  - DRUG EXPOSURE DURING PREGNANCY [None]
  - HYPOGLYCAEMIA NEONATAL [None]
  - PREMATURE BABY [None]
